FAERS Safety Report 10479995 (Version 29)
Quarter: 2016Q4

REPORT INFORMATION
  Report Type: Report from Study
  Country: CA (occurrence: CA)
  Receive Date: 20140929
  Receipt Date: 20161013
  Transmission Date: 20170206
  Serious: Yes (Hospitalization, Other)
  Sender: FDA-Public Use
  Company Number: CA-ROCHE-1244084

PATIENT
  Age: 28 Year
  Sex: Female
  Weight: 70 kg

DRUGS (19)
  1. ACTEMRA [Suspect]
     Active Substance: TOCILIZUMAB
     Route: 042
     Dates: start: 20141113
  2. PREDNISONE. [Suspect]
     Active Substance: PREDNISONE
     Route: 065
  3. FOLIC ACID. [Concomitant]
     Active Substance: FOLIC ACID
  4. EURO D [Concomitant]
  5. ACTEMRA [Suspect]
     Active Substance: TOCILIZUMAB
     Route: 042
     Dates: start: 20151120
  6. METHOTREXATE. [Concomitant]
     Active Substance: METHOTREXATE
     Route: 058
  7. RISEDRONATE [Concomitant]
     Active Substance: RISEDRONATE SODIUM
  8. ORTHO EVRA [Concomitant]
     Active Substance: ETHINYL ESTRADIOL\NORELGESTROMIN
  9. PANTOLOC [Concomitant]
     Active Substance: PANTOPRAZOLE SODIUM
  10. METHOTREXATE. [Concomitant]
     Active Substance: METHOTREXATE
     Route: 048
  11. ACTEMRA [Suspect]
     Active Substance: TOCILIZUMAB
     Indication: TAKAYASU^S ARTERITIS
     Route: 042
     Dates: start: 20130620
  12. ACTEMRA [Suspect]
     Active Substance: TOCILIZUMAB
     Route: 042
     Dates: start: 20140910
  13. ACTEMRA [Suspect]
     Active Substance: TOCILIZUMAB
     Route: 042
     Dates: start: 20151223
  14. PREDNISONE. [Suspect]
     Active Substance: PREDNISONE
     Indication: PRODUCT USED FOR UNKNOWN INDICATION
     Route: 065
  15. ACTEMRA [Suspect]
     Active Substance: TOCILIZUMAB
     Route: 042
     Dates: start: 20150107
  16. ACTEMRA [Suspect]
     Active Substance: TOCILIZUMAB
     Dosage: 8 MG/KG, MONTHLY
     Route: 042
     Dates: start: 20130704
  17. ACTEMRA [Suspect]
     Active Substance: TOCILIZUMAB
     Route: 042
     Dates: start: 20131227
  18. ACTEMRA [Suspect]
     Active Substance: TOCILIZUMAB
     Route: 042
     Dates: start: 20160825
  19. PREDNISONE. [Suspect]
     Active Substance: PREDNISONE
     Route: 065

REACTIONS (30)
  - Acne [Not Recovered/Not Resolved]
  - Weight increased [Unknown]
  - Malaise [Not Recovered/Not Resolved]
  - Vertigo [Unknown]
  - Pyelonephritis acute [Recovered/Resolved]
  - Blood pressure increased [Unknown]
  - Weight increased [Unknown]
  - Off label use [Unknown]
  - Infusion related reaction [Unknown]
  - Palpitations [Recovered/Resolved]
  - Fatigue [Not Recovered/Not Resolved]
  - Weight decreased [Unknown]
  - Myalgia [Not Recovered/Not Resolved]
  - Rash [Not Recovered/Not Resolved]
  - Back pain [Not Recovered/Not Resolved]
  - Blood pressure diastolic decreased [Unknown]
  - Arthropod bite [Unknown]
  - Blood pressure increased [Unknown]
  - Urinary tract infection [Recovered/Resolved]
  - Oropharyngeal pain [Not Recovered/Not Resolved]
  - Sinus pain [Recovered/Resolved]
  - Pharyngitis streptococcal [Recovered/Resolved]
  - Immunosuppression [Unknown]
  - Dizziness [Recovered/Resolved]
  - Blood pressure diastolic decreased [Unknown]
  - Rash [Recovering/Resolving]
  - Pyrexia [Unknown]
  - Nasopharyngitis [Recovered/Resolved]
  - Blood pressure systolic increased [Unknown]
  - Pain [Not Recovered/Not Resolved]

NARRATIVE: CASE EVENT DATE: 20130620
